FAERS Safety Report 6650029-8 (Version None)
Quarter: 2010Q1

REPORT INFORMATION
  Report Type: 
  Country: None (occurrence: None)
  Receive Date: 20100325
  Receipt Date: 20100310
  Transmission Date: 20100710
  Serious: Yes (Hospitalization)
  Sender: FDA-Public Use
  Company Number: DE-ELI_LILLY_AND_COMPANY-DE201003006208

PATIENT
  Sex: Male

DRUGS (4)
  1. BERLINSULIN REGULAR [Suspect]
     Indication: DIABETES MELLITUS
     Dosage: 10 IU, 2/D
     Route: 058
  2. LANTUS [Concomitant]
     Indication: DIABETES MELLITUS
     Dosage: 36 IU, DAILY (1/D)
     Route: 058
  3. LANTUS [Concomitant]
     Dosage: 32 IU, DAILY (1/D)
     Route: 058
  4. LANTUS [Concomitant]
     Dosage: 34 IU, DAILY (1/D)
     Route: 058

REACTIONS (4)
  - BLOOD GLUCOSE INCREASED [None]
  - HOSPITALISATION [None]
  - HYPOGLYCAEMIA [None]
  - MOBILITY DECREASED [None]
